FAERS Safety Report 4677119-3 (Version None)
Quarter: 2005Q2

REPORT INFORMATION
  Report Type: 
  Country: None (occurrence: None)
  Receive Date: 20050526
  Receipt Date: 20050526
  Transmission Date: 20051028
  Serious: Yes (Hospitalization)
  Sender: FDA-Public Use
  Company Number: None

PATIENT
  Sex: Male

DRUGS (2)
  1. GLEEVEC [Suspect]
     Indication: PANCREATIC CARCINOMA
     Dosage: 300 MG    DAYS 1-14    ORAL
     Route: 048
     Dates: start: 20050429, end: 20050512
  2. GEMCITABINE     800 MG/M2 [Suspect]
     Dosage: 800 MG/M2    DAYS 1 AND 8   INTRAVENOU
     Route: 042
     Dates: start: 20050429, end: 20050506

REACTIONS (4)
  - ABDOMINAL PAIN UPPER [None]
  - BACILLUS INFECTION [None]
  - BACTERAEMIA [None]
  - PYREXIA [None]
